FAERS Safety Report 8884776 (Version 4)
Quarter: 2013Q1

REPORT INFORMATION
  Report Type: Spontaneous
  Country: US (occurrence: US)
  Receive Date: 20121105
  Receipt Date: 20130111
  Transmission Date: 20140127
  Serious: Yes (Other)
  Sender: FDA-Public Use
  Company Number: US-009507513-1210USA013734

PATIENT
  Sex: Female

DRUGS (4)
  1. PEG-INTRON [Suspect]
     Indication: HEPATITIS C
     Dosage: UNK
     Dates: start: 20121012, end: 20121206
  2. PEG-INTRON [Suspect]
     Dosage: UNK
     Dates: start: 20121207
  3. RIBAVIRIN [Suspect]
     Indication: HEPATITIS C
     Dosage: UNK
     Route: 048
     Dates: start: 20121012
  4. VICTRELIS [Suspect]
     Indication: HEPATITIS C
     Dosage: UNK
     Route: 048
     Dates: start: 20121108

REACTIONS (43)
  - Thinking abnormal [Unknown]
  - Rectal haemorrhage [Unknown]
  - Haemorrhage [Unknown]
  - Food craving [Unknown]
  - Nasopharyngitis [Unknown]
  - Fatigue [Unknown]
  - Pyrexia [Unknown]
  - Abdominal discomfort [Unknown]
  - Injection site reaction [Unknown]
  - Depression [Unknown]
  - Influenza like illness [Unknown]
  - Pain [Unknown]
  - Headache [Unknown]
  - Vomiting [Unknown]
  - Nausea [Unknown]
  - Pyrexia [Unknown]
  - Amnesia [Unknown]
  - Abdominal pain upper [Unknown]
  - Polyp [Unknown]
  - Urine odour abnormal [Unknown]
  - Chromaturia [Unknown]
  - Dysgeusia [Unknown]
  - Gallbladder pain [Unknown]
  - Thinking abnormal [Unknown]
  - Irritability [Unknown]
  - Abdominal discomfort [Unknown]
  - Dysgeusia [Unknown]
  - Back pain [Unknown]
  - Neck pain [Unknown]
  - Nasopharyngitis [Unknown]
  - Hyperhidrosis [Unknown]
  - Weight decreased [Unknown]
  - Pyrexia [Unknown]
  - Abdominal distension [Unknown]
  - Dysphonia [Unknown]
  - Dizziness [Unknown]
  - Retching [Unknown]
  - Arthritis [Unknown]
  - Pyrexia [Unknown]
  - Gingival bleeding [Unknown]
  - Intervertebral disc protrusion [Unknown]
  - Intervertebral disc protrusion [Unknown]
  - Dysgeusia [Unknown]
